FAERS Safety Report 4930421-X (Version None)
Quarter: 2006Q1

REPORT INFORMATION
  Report Type: 
  Country: None (occurrence: None)
  Receive Date: 20060302
  Receipt Date: 20040729
  Transmission Date: 20060701
  Serious: Yes (Hospitalization)
  Sender: FDA-Public Use
  Company Number: 200412883FR

PATIENT
  Age: 31 Year
  Sex: Male
  Weight: 57 kg

DRUGS (14)
  1. RIFAMPIN AND ISONIAZID [Suspect]
     Route: 048
     Dates: start: 20030822, end: 20030928
  2. METHOTREXATE SODIUM [Suspect]
     Route: 048
     Dates: start: 20030822, end: 20030928
  3. ARAVA [Suspect]
     Route: 048
     Dates: start: 20040701, end: 20041020
  4. ENBREL [Suspect]
     Route: 058
     Dates: start: 20030923, end: 20030926
  5. MS CONTIN [Concomitant]
     Dosage: DOSE: 30-0-30
     Dates: start: 20030822
  6. DUPHALAC [Concomitant]
     Dates: start: 20030822
  7. CELEBREX [Concomitant]
     Dosage: DOSE: 1-0-1; DOSE UNIT: UNITS
     Dates: start: 20030822
  8. DIPROSONE CREME [Concomitant]
     Route: 061
     Dates: start: 20030822
  9. FLAMMAZINE [Concomitant]
     Route: 061
     Dates: start: 20030822
  10. TRAMADOL HCL [Concomitant]
     Dosage: FORMULATION: NOT APPLICABLE
  11. MEDROL [Concomitant]
  12. CORTICOSTEROIDS [Concomitant]
     Dates: start: 20041001
  13. REMICADE [Concomitant]
     Dates: start: 20041001
  14. MORPHINE SULFATE [Concomitant]
     Dates: start: 20040101

REACTIONS (5)
  - BLOOD ALBUMIN DECREASED [None]
  - GAMMA-GLUTAMYLTRANSFERASE INCREASED [None]
  - HYPERAMYLASAEMIA [None]
  - LIPASE INCREASED [None]
  - PANCREATITIS ACUTE [None]
